FAERS Safety Report 21749880 (Version 1)
Quarter: 2022Q4

REPORT INFORMATION
  Report Type: Spontaneous
  Country: FR (occurrence: FR)
  Receive Date: 20221219
  Receipt Date: 20221219
  Transmission Date: 20230112
  Serious: Yes (Hospitalization)
  Sender: FDA-Public Use
  Company Number: None

PATIENT
  Age: 86 Year
  Sex: Female
  Weight: 41 kg

DRUGS (1)
  1. KEYTRUDA [Suspect]
     Active Substance: PEMBROLIZUMAB
     Indication: Renal cancer metastatic
     Dosage: UNK
     Route: 042
     Dates: start: 20220913, end: 20221013

REACTIONS (1)
  - Microembolism [Not Recovered/Not Resolved]

NARRATIVE: CASE EVENT DATE: 20221105
